FAERS Safety Report 7491532-0 (Version None)
Quarter: 2011Q2

REPORT INFORMATION
  Report Type: 
  Country: None (occurrence: None)
  Receive Date: 20110519
  Receipt Date: 20110506
  Transmission Date: 20111010
  Serious: Yes (Other)
  Sender: FDA-Public Use
  Company Number: US-ELI_LILLY_AND_COMPANY-US201105002416

PATIENT
  Age: 83 Year
  Sex: Female

DRUGS (7)
  1. CYMBALTA [Suspect]
     Dosage: 60 MG, QD
     Dates: start: 20101101
  2. CYMBALTA [Suspect]
     Dosage: 40 MG, QD
  3. CYMBALTA [Suspect]
     Dosage: 30 MG, QD
  4. CYMBALTA [Suspect]
     Dosage: 30 MG, QD
  5. MORPHINE [Concomitant]
  6. CYMBALTA [Suspect]
     Indication: DEPRESSION
     Dosage: 20 MG, QD
     Dates: start: 20100901
  7. ATIVAN [Concomitant]

REACTIONS (2)
  - DISEASE PROGRESSION [None]
  - ANXIETY [None]
